FAERS Safety Report 8586927 (Version 3)
Quarter: 2012Q4

REPORT INFORMATION
  Report Type: Report from Study
  Country: JP (occurrence: JP)
  Receive Date: 20120530
  Receipt Date: 20120830
  Transmission Date: 20130627
  Serious: Yes (Other)
  Sender: FDA-Public Use
  Company Number: JP-GILEAD-2012-0055648

PATIENT
  Age: 79 Year
  Sex: Male

DRUGS (5)
  1. AMBRISENTAN [Suspect]
     Indication: PULMONARY HYPERTENSION
     Dosage: 2.5MG Per day
     Route: 048
     Dates: start: 20120502, end: 20120511
  2. TOLVAPTAN [Concomitant]
     Dosage: 15MG Per day
     Route: 048
     Dates: start: 20120425, end: 20120507
  3. ADCIRCA [Concomitant]
     Dosage: 20MG Per day
     Route: 048
     Dates: start: 20120502, end: 20120510
  4. BERAPROST SODIUM [Concomitant]
     Dosage: 360MCG Per day
     Route: 048
     Dates: start: 20120427, end: 20120511
  5. UNISIA [Concomitant]
     Route: 048
     Dates: start: 20120408, end: 20120511

REACTIONS (1)
  - Renal failure acute [Not Recovered/Not Resolved]
